FAERS Safety Report 25969271 (Version 1)
Quarter: 2025Q4

REPORT INFORMATION
  Report Type: Spontaneous
  Country: GB (occurrence: GB)
  Receive Date: 20251028
  Receipt Date: 20251028
  Transmission Date: 20260118
  Serious: Yes (Other)
  Sender: TEVA
  Company Number: None

PATIENT
  Age: 55 Year
  Sex: Female
  Weight: 96 kg

DRUGS (2)
  1. MONTELUKAST [Suspect]
     Active Substance: MONTELUKAST
     Indication: Adverse drug reaction
     Dosage: AT NIGHT
     Route: 065
     Dates: start: 20250718
  2. MONTELUKAST [Suspect]
     Active Substance: MONTELUKAST
     Indication: Adverse drug reaction
     Route: 065
     Dates: start: 20250718

REACTIONS (1)
  - Mental disorder [Recovering/Resolving]

NARRATIVE: CASE EVENT DATE: 20251006
